FAERS Safety Report 7218057-1 (Version None)
Quarter: 2011Q1

REPORT INFORMATION
  Report Type: 
  Country: None (occurrence: None)
  Receive Date: 20110110
  Receipt Date: 20101229
  Transmission Date: 20110831
  Serious: Yes (Hospitalization)
  Sender: FDA-Public Use
  Company Number: US-ELI_LILLY_AND_COMPANY-US201009003894

PATIENT
  Sex: Female

DRUGS (16)
  1. TRAVATAN [Concomitant]
  2. FORTEO [Suspect]
     Dosage: 20 UG, DAILY (1/D)
  3. BRIMONIDINE TARTRATE [Concomitant]
  4. TIMOLOL [Concomitant]
  5. LISINOPRIL [Concomitant]
  6. PLAVIX [Concomitant]
  7. TYLENOL W/ CODEINE [Concomitant]
  8. CELEBREX [Concomitant]
  9. GINSENG /00480901/ [Concomitant]
  10. LASIX [Concomitant]
  11. FISH OIL [Concomitant]
  12. LIPITOR [Concomitant]
  13. THERA TEARS [Concomitant]
  14. FORTEO [Suspect]
     Indication: OSTEOPOROSIS
     Dosage: 20 UG, DAILY (1/D)
     Dates: start: 20100401
  15. DIOVAN [Concomitant]
     Indication: BLOOD PRESSURE
  16. GINKO BILOBA [Concomitant]

REACTIONS (12)
  - PAIN IN EXTREMITY [None]
  - DIZZINESS [None]
  - FALL [None]
  - CONTUSION [None]
  - ARTHRALGIA [None]
  - PAIN [None]
  - EYE PRURITUS [None]
  - ARTHRITIS [None]
  - DIARRHOEA [None]
  - RHINORRHOEA [None]
  - THROAT IRRITATION [None]
  - FAECAL INCONTINENCE [None]
